FAERS Safety Report 17016687 (Version 1)
Quarter: 2019Q4

REPORT INFORMATION
  Report Type: Spontaneous
  Country: US (occurrence: US)
  Receive Date: 20191111
  Receipt Date: 20191111
  Transmission Date: 20200122
  Serious: No
  Sender: FDA-Public Use
  Company Number: US-MYLANLABS-2019M1102937

PATIENT
  Sex: Male

DRUGS (3)
  1. COZAAR [Concomitant]
     Active Substance: LOSARTAN POTASSIUM
  2. METOPROLOL. [Concomitant]
     Active Substance: METOPROLOL
  3. CLONIDINE TRANSDERMAL SYSTEM [Suspect]
     Active Substance: CLONIDINE
     Indication: HYPERTENSION
     Dosage: 3 MILLIGRAM, QW
     Route: 062

REACTIONS (4)
  - Application site irritation [Unknown]
  - Application site reaction [Unknown]
  - Application site erythema [Unknown]
  - Application site discolouration [Not Recovered/Not Resolved]
